FAERS Safety Report 10523873 (Version 1)
Quarter: 2014Q4

REPORT INFORMATION
  Report Type: Spontaneous
  Country: US (occurrence: None)
  Receive Date: 20141015
  Receipt Date: 20141015
  Transmission Date: 20150528
  Serious: Yes (Disabling)
  Sender: FDA-Public Use
  Company Number: None

PATIENT
  Age: 63 Year
  Sex: Female
  Weight: 117.03 kg

DRUGS (1)
  1. FLUCONAZOLE. [Suspect]
     Active Substance: FLUCONAZOLE
     Indication: CANDIDA INFECTION
     Dosage: 1 PILL QD ORAL
     Route: 048
     Dates: start: 20141009, end: 20141012

REACTIONS (4)
  - Wheelchair user [None]
  - Abasia [None]
  - Post procedural inflammation [None]
  - Hypersensitivity [None]

NARRATIVE: CASE EVENT DATE: 20141011
